FAERS Safety Report 4306324-0 (Version None)
Quarter: 2004Q1

REPORT INFORMATION
  Report Type: 
  Country: None (occurrence: None)
  Receive Date: 20040225
  Receipt Date: 20030516
  Transmission Date: 20041129
  Serious: No
  Sender: FDA-Public Use
  Company Number: US-BRISTOL-MYERS SQUIBB COMPANY-12287793

PATIENT
  Sex: Female

DRUGS (2)
  1. EXCEDRIN [Suspect]
     Indication: MIGRAINE
     Route: 048
  2. IRON [Concomitant]
     Route: 048

REACTIONS (5)
  - HAEMATOCRIT DECREASED [None]
  - HAEMOGLOBIN DECREASED [None]
  - HUNGER [None]
  - INCREASED APPETITE [None]
  - LIBIDO INCREASED [None]
